FAERS Safety Report 5645821-2 (Version None)
Quarter: 2008Q1

REPORT INFORMATION
  Report Type: 
  Country: None (occurrence: None)
  Receive Date: 20080229
  Receipt Date: 20080218
  Transmission Date: 20080703
  Serious: Yes (Other)
  Sender: FDA-Public Use
  Company Number: US-PFIZER INC-2008001519

PATIENT
  Sex: Male

DRUGS (7)
  1. ZYVOX [Suspect]
     Indication: STAPHYLOCOCCAL INFECTION
     Route: 048
  2. BACTRIM [Suspect]
     Indication: STAPHYLOCOCCAL INFECTION
  3. COUMADIN [Concomitant]
  4. NORVASC [Concomitant]
  5. PLAQUENIL [Concomitant]
  6. ALL OTHER THERAPEUTIC PRODUCTS [Concomitant]
  7. CUBICIN [Concomitant]
     Route: 042

REACTIONS (10)
  - DIARRHOEA [None]
  - DRY MOUTH [None]
  - DYSGEUSIA [None]
  - DYSPHAGIA [None]
  - LIP SWELLING [None]
  - NAUSEA [None]
  - ORAL DISORDER [None]
  - RETCHING [None]
  - SWELLING FACE [None]
  - TONGUE OEDEMA [None]
